FAERS Safety Report 17006921 (Version 1)
Quarter: 2019Q4

REPORT INFORMATION
  Report Type: Spontaneous
  Country: US (occurrence: US)
  Receive Date: 20191107
  Receipt Date: 20191107
  Transmission Date: 20200122
  Serious: No
  Sender: FDA-Public Use
  Company Number: US-CELGENEUS-USA-20191011946

PATIENT
  Age: 62 Year
  Sex: Female

DRUGS (3)
  1. THALOMID [Suspect]
     Active Substance: THALIDOMIDE
     Indication: STOMATITIS
     Dosage: 50 MILLIGRAM
     Route: 048
     Dates: start: 200108
  2. THALOMID [Suspect]
     Active Substance: THALIDOMIDE
     Indication: APHTHOUS ULCER
     Dosage: 50 MILLIGRAM
     Route: 048
     Dates: start: 20180208
  3. THALOMID [Suspect]
     Active Substance: THALIDOMIDE
     Indication: OFF LABEL USE

REACTIONS (2)
  - Paraesthesia [Not Recovered/Not Resolved]
  - Product dose omission [Unknown]

NARRATIVE: CASE EVENT DATE: 20191027
